FAERS Safety Report 4620374-6 (Version None)
Quarter: 2005Q1

REPORT INFORMATION
  Report Type: 
  Country: None (occurrence: None)
  Receive Date: 20050324
  Receipt Date: 20050312
  Transmission Date: 20050727
  Serious: Yes (Other)
  Sender: FDA-Public Use
  Company Number: 2005044740

PATIENT
  Age: 74 Year
  Sex: Female
  Weight: 87.9978 kg

DRUGS (6)
  1. NEURONTIN [Suspect]
     Indication: ARTHRITIS
     Dosage: 900 MG (300 MG, 3 IN 1 D), ORAL
     Route: 048
  2. OMEPRAZOLE [Concomitant]
  3. TOCOPHEROL (TOCOPHEROL) [Concomitant]
  4. CALCIUM (CALCIUM) [Concomitant]
  5. CENTRUM SILVER (ASCORBIC ACID, CALCIUM, MINERALS NOS, RETINOL, TOCOPHE [Concomitant]
  6. ASPIRIN [Concomitant]

REACTIONS (3)
  - FATIGUE [None]
  - GOITRE [None]
  - SOMNOLENCE [None]
